FAERS Safety Report 5781469-7 (Version None)
Quarter: 2008Q2

REPORT INFORMATION
  Report Type: 
  Country: None (occurrence: None)
  Receive Date: 20080623
  Receipt Date: 20080307
  Transmission Date: 20081010
  Serious: No
  Sender: FDA-Public Use
  Company Number: US-ASTRAZENECA-2008UW04778

PATIENT
  Age: 69 Year
  Sex: Male
  Weight: 83.9 kg

DRUGS (1)
  1. ENTOCORT EC [Suspect]
     Indication: CROHN'S DISEASE
     Route: 048

REACTIONS (3)
  - ANXIETY [None]
  - DYSPNOEA [None]
  - INSOMNIA [None]
